FAERS Safety Report 6192366-X (Version None)
Quarter: 2009Q2

REPORT INFORMATION
  Report Type: 
  Country: None (occurrence: None)
  Receive Date: 20090518
  Receipt Date: 20070814
  Transmission Date: 20091009
  Serious: Yes (Hospitalization, Other)
  Sender: FDA-Public Use
  Company Number: US-ASTRAZENECA-2007UW03829

PATIENT
  Age: 480 Month
  Sex: Female
  Weight: 88 kg

DRUGS (28)
  1. SEROQUEL [Suspect]
     Indication: BIPOLAR DISORDER
     Route: 048
     Dates: start: 19990101
  2. SEROQUEL [Suspect]
     Indication: DEPRESSION
     Route: 048
     Dates: start: 19990101
  3. SEROQUEL [Suspect]
     Route: 048
     Dates: start: 20051031
  4. SEROQUEL [Suspect]
     Route: 048
     Dates: start: 20051031
  5. RISPERDAL [Suspect]
     Dosage: 4-6 MG DAILY
     Route: 048
     Dates: start: 19980216, end: 20030723
  6. RISPERDAL [Suspect]
     Route: 065
  7. ZYPREXA [Concomitant]
     Route: 065
     Dates: start: 20000905, end: 20030214
  8. AMITRIPTLINE HYDROCHLORIDE TAB [Concomitant]
     Route: 065
  9. NAPROSYN [Concomitant]
     Route: 065
  10. REGLAN [Concomitant]
     Dosage: 10MG EVERY 3 HRS WHEN REQUIRED
     Route: 065
  11. ZOLOFT [Concomitant]
     Route: 065
  12. PROGESTIN INJ [Concomitant]
     Route: 065
  13. METFORMIN HCL [Concomitant]
     Route: 065
  14. LISINOPRIL [Concomitant]
     Route: 065
  15. ORPHENADRINE CITRATE [Concomitant]
     Route: 065
  16. VYTORIN [Concomitant]
     Dosage: 10-20 MG
     Route: 065
  17. FLEXERIL [Concomitant]
     Route: 065
  18. TRAMADOL HCL [Concomitant]
     Route: 065
  19. AVANDARYL [Concomitant]
     Route: 065
  20. SYNTHROID [Concomitant]
     Route: 065
  21. ALBUTEROL [Concomitant]
     Route: 065
  22. SINGULAIR [Concomitant]
     Route: 065
  23. ALPRAZOLAM [Concomitant]
     Route: 065
  24. PAXIL [Concomitant]
     Route: 065
  25. PERCOCET [Concomitant]
     Route: 048
  26. NOVOLOG [Concomitant]
     Route: 065
  27. ROCEPHIN [Concomitant]
     Route: 065
  28. GLUCOTROL [Concomitant]
     Route: 065

REACTIONS (24)
  - ABDOMINAL PAIN [None]
  - ABDOMINAL PAIN UPPER [None]
  - ANAEMIA [None]
  - ANORECTAL DISCOMFORT [None]
  - ASTHENIA [None]
  - ASTHMA [None]
  - BACK PAIN [None]
  - CHOLECYSTITIS CHRONIC [None]
  - CHOLELITHIASIS [None]
  - CONSTIPATION [None]
  - CYSTITIS INTERSTITIAL [None]
  - EYE PAIN [None]
  - GOITRE [None]
  - HEADACHE [None]
  - NAUSEA [None]
  - OROPHARYNGEAL PAIN [None]
  - OTITIS MEDIA [None]
  - PAIN IN EXTREMITY [None]
  - PANCREATITIS ACUTE [None]
  - PELVIC PAIN [None]
  - RECTAL HAEMORRHAGE [None]
  - TYPE 1 DIABETES MELLITUS [None]
  - UPPER RESPIRATORY TRACT INFECTION [None]
  - VULVOVAGINAL BURNING SENSATION [None]
